FAERS Safety Report 13251578 (Version 1)
Quarter: 2017Q1

REPORT INFORMATION
  Report Type: Spontaneous
  Country: AR (occurrence: AR)
  Receive Date: 20170220
  Receipt Date: 20170220
  Transmission Date: 20170428
  Serious: Yes (Other)
  Sender: FDA-Public Use
  Company Number: AR-LANNETT COMPANY, INC.-AR-2017LAN000577

PATIENT
  Age: 32 Year
  Sex: Male

DRUGS (1)
  1. ACETAZOLAMIDE. [Suspect]
     Active Substance: ACETAZOLAMIDE
     Indication: PROPHYLAXIS
     Dosage: UNK

REACTIONS (4)
  - Familial periodic paralysis [Unknown]
  - Condition aggravated [Unknown]
  - Muscle hypertrophy [Unknown]
  - Blood creatine phosphokinase increased [Unknown]
